FAERS Safety Report 4644042-X (Version None)
Quarter: 2005Q2

REPORT INFORMATION
  Report Type: 
  Country: None (occurrence: None)
  Receive Date: 20050425
  Receipt Date: 20050414
  Transmission Date: 20051028
  Serious: Yes (Hospitalization)
  Sender: FDA-Public Use
  Company Number: US-BRISTOL-MYERS SQUIBB COMPANY-12934444

PATIENT
  Age: 65 Year
  Sex: Female
  Weight: 136 kg

DRUGS (3)
  1. DEFINITY [Suspect]
     Indication: CORONARY ARTERY DISEASE
     Route: 040
     Dates: start: 20050413
  2. DILANTIN [Concomitant]
  3. PROTONIX [Concomitant]

REACTIONS (4)
  - BLOOD PRESSURE DECREASED [None]
  - ELECTROCARDIOGRAM ST SEGMENT ELEVATION [None]
  - RESPIRATORY DISTRESS [None]
  - VASOSPASM [None]
